FAERS Safety Report 9707315 (Version 1)
Quarter: 2013Q4

REPORT INFORMATION
  Report Type: Spontaneous
  Country: US (occurrence: US)
  Receive Date: 20131125
  Receipt Date: 20131125
  Transmission Date: 20140711
  Serious: No
  Sender: FDA-Public Use
  Company Number: US-GLAXOSMITHKLINE-A1007318A

PATIENT
  Age: 59 Year
  Sex: Female

DRUGS (12)
  1. FLOVENT [Suspect]
     Indication: BRONCHIAL HYPERREACTIVITY
     Dosage: 2PUFF TWICE PER DAY
     Route: 055
     Dates: start: 2009
  2. LISINOPRIL [Concomitant]
  3. FLUTICASONE [Concomitant]
  4. RANITIDINE [Concomitant]
  5. TYLENOL W/ CODEINE [Concomitant]
  6. PERCOCET [Concomitant]
  7. ALBUTEROL [Concomitant]
  8. PRO-AIR [Concomitant]
  9. PREDNISONE [Concomitant]
  10. SIMVASTATIN [Concomitant]
  11. ESTRACE [Concomitant]
  12. VALIUM [Concomitant]

REACTIONS (1)
  - Bronchial hyperreactivity [Not Recovered/Not Resolved]
